FAERS Safety Report 24617075 (Version 1)
Quarter: 2024Q4

REPORT INFORMATION
  Report Type: Spontaneous
  Country: US (occurrence: US)
  Receive Date: 20241114
  Receipt Date: 20241114
  Transmission Date: 20250114
  Serious: Yes (Hospitalization, Other)
  Sender: COOPERSURGICAL
  Company Number: US-COOPERSURGICAL, INC.-2024CPS003365

PATIENT
  Age: 32 Year
  Sex: Female
  Weight: 54.422 kg

DRUGS (1)
  1. PARAGARD T 380A [Suspect]
     Active Substance: COPPER
     Indication: Contraception
     Dosage: UNK
     Route: 015
     Dates: start: 20150102

REACTIONS (17)
  - Reproductive complication associated with device [Not Recovered/Not Resolved]
  - Salpingectomy [Recovered/Resolved]
  - Oophorectomy [Recovered/Resolved]
  - Hysterectomy [Recovered/Resolved]
  - Infection [Unknown]
  - Perihepatitis [Unknown]
  - Intestinal perforation [Unknown]
  - Device breakage [Unknown]
  - Foreign body in reproductive tract [Unknown]
  - Complication of device removal [Unknown]
  - Uterine perforation [Unknown]
  - Abdominal adhesions [Not Recovered/Not Resolved]
  - Abdominal infection [Recovered/Resolved]
  - Abdominal pain [Unknown]
  - Pelvic abscess [Unknown]
  - Gastrointestinal disorder [Unknown]
  - Emotional disorder [Unknown]

NARRATIVE: CASE EVENT DATE: 20191201
